FAERS Safety Report 9842069 (Version 1)
Quarter: 2014Q1

REPORT INFORMATION
  Report Type: Spontaneous
  Country: US (occurrence: US)
  Receive Date: 20140124
  Receipt Date: 20140124
  Transmission Date: 20141002
  Serious: Yes (Other)
  Sender: FDA-Public Use
  Company Number: CHPA2014US000949

PATIENT
  Age: 63 Year
  Sex: Male

DRUGS (3)
  1. KROGER PLP [Suspect]
     Indication: SMOKING CESSATION THERAPY
     Dosage: 14 MG, UNK
     Route: 062
  2. HABITROL [Suspect]
     Dosage: 21 MG, UNK
     Dates: start: 20131025
  3. ANTIBIOTICS [Concomitant]

REACTIONS (2)
  - Ageusia [Recovering/Resolving]
  - Incorrect drug administration duration [Unknown]
